FAERS Safety Report 18283142 (Version 1)
Quarter: 2020Q3

REPORT INFORMATION
  Report Type: Spontaneous
  Country: US (occurrence: US)
  Receive Date: 20200917
  Receipt Date: 20200917
  Transmission Date: 20201103
  Serious: Yes (Hospitalization)
  Sender: FDA-Public Use
  Company Number: None

PATIENT
  Age: 60 Year
  Sex: Female
  Weight: 87 kg

DRUGS (1)
  1. ASPIRIN. [Suspect]
     Active Substance: ASPIRIN
     Dates: end: 20190730

REACTIONS (5)
  - Effusion [None]
  - Pyrexia [None]
  - Dyspnoea [None]
  - Cardiac failure [None]
  - Therapy interrupted [None]

NARRATIVE: CASE EVENT DATE: 20200717
